FAERS Safety Report 18125158 (Version 2)
Quarter: 2020Q4

REPORT INFORMATION
  Report Type: Spontaneous
  Country: US (occurrence: US)
  Receive Date: 20200807
  Receipt Date: 20201014
  Transmission Date: 20210113
  Serious: Yes (Hospitalization, Disabling)
  Sender: FDA-Public Use
  Company Number: US-TEVA-2020-US-1811319

PATIENT
  Age: 16 Year
  Sex: Male

DRUGS (7)
  1. LEXAPRO [Concomitant]
     Active Substance: ESCITALOPRAM OXALATE
     Dosage: 10 MG MORNING
  2. BACLOFEN. [Concomitant]
     Active Substance: BACLOFEN
     Dosage: 15 MG MORNING AND EVENING, 20 MG EVENING
  3. ACETAMINOPHIN [Concomitant]
     Indication: PAIN
     Dosage: AS NEEDED
  4. GABAPENTIN. [Concomitant]
     Active Substance: GABAPENTIN
     Dosage: 900 MG MORNING AND EVENING, 600 MG MIDDAY
  5. MELATON [Concomitant]
     Dosage: 5 MG EVENING
  6. AZITHROMYCIN ANHYDROUS. [Suspect]
     Active Substance: AZITHROMYCIN ANHYDROUS
     Indication: BRONCHITIS
     Dosage: 2 TABLETS 1ST DAY, THEN 1 TABLET FOR 4 DAYS
     Route: 065
     Dates: start: 20200106, end: 20200109
  7. MIRALAX [Concomitant]
     Active Substance: POLYETHYLENE GLYCOL 3350
     Indication: ABDOMINAL DISCOMFORT
     Dosage: ONE DOSE DAILY

REACTIONS (7)
  - Disability [Unknown]
  - Wheelchair user [Unknown]
  - Restlessness [Unknown]
  - Anxiety [Unknown]
  - Insomnia [Unknown]
  - Depression [Unknown]
  - Suicide attempt [Not Recovered/Not Resolved]

NARRATIVE: CASE EVENT DATE: 20200109
